FAERS Safety Report 17631193 (Version 3)
Quarter: 2020Q2

REPORT INFORMATION
  Report Type: Spontaneous
  Country: US (occurrence: US)
  Receive Date: 20200406
  Receipt Date: 20200408
  Transmission Date: 20200713
  Serious: Yes (Other)
  Sender: FDA-Public Use
  Company Number: US-GILEAD-2020-0457758

PATIENT
  Age: 57 Year
  Sex: Female

DRUGS (1)
  1. EPCLUSA [Suspect]
     Active Substance: SOFOSBUVIR\VELPATASVIR
     Indication: PRODUCT USED FOR UNKNOWN INDICATION
     Dosage: UNK
     Route: 065

REACTIONS (10)
  - Loss of consciousness [Unknown]
  - Arthritis [Unknown]
  - Bedridden [Unknown]
  - Malaise [Unknown]
  - Gait inability [Unknown]
  - Anxiety [Unknown]
  - Condition aggravated [Unknown]
  - Asthenia [Unknown]
  - Anger [Unknown]
  - Arthralgia [Unknown]
